FAERS Safety Report 9373450 (Version 2)
Quarter: 2013Q4

REPORT INFORMATION
  Report Type: Spontaneous
  Country: US (occurrence: US)
  Receive Date: 20130627
  Receipt Date: 20131015
  Transmission Date: 20140711
  Serious: Yes (Hospitalization)
  Sender: FDA-Public Use
  Company Number: US-009507513-1306USA008131

PATIENT
  Age: 61 Year
  Sex: Female
  Weight: 109.8 kg

DRUGS (1)
  1. DEXAMETHASONE [Suspect]
     Indication: PLASMA CELL MYELOMA
     Dosage: DOSE: 4 MG (40 MG), FREQUENCY: TAKE 10 TABLETS Q WEEKLY PER DAY (Q7 DAYS)
     Route: 048
     Dates: start: 20120301, end: 20121126

REACTIONS (2)
  - Hospitalisation [Recovered/Resolved]
  - Staphylococcus test positive [Unknown]
